FAERS Safety Report 23763791 (Version 1)
Quarter: 2024Q2

REPORT INFORMATION
  Report Type: Spontaneous
  Country: US (occurrence: US)
  Receive Date: 20240419
  Receipt Date: 20240419
  Transmission Date: 20240716
  Serious: No
  Sender: FDA-Public Use
  Company Number: US-JNJFOC-20240436375

PATIENT
  Age: 60 Year
  Sex: Male

DRUGS (2)
  1. ERLEADA [Interacting]
     Active Substance: APALUTAMIDE
     Indication: Prostate cancer
     Route: 048
  2. XARELTO [Suspect]
     Active Substance: RIVAROXABAN
     Indication: Product used for unknown indication
     Route: 048

REACTIONS (2)
  - Drug level below therapeutic [Unknown]
  - Drug interaction [Unknown]
